FAERS Safety Report 6501885-5 (Version None)
Quarter: 2009Q4

REPORT INFORMATION
  Report Type: 
  Country: None (occurrence: None)
  Receive Date: 20091216
  Receipt Date: 20091204
  Transmission Date: 20100525
  Serious: Yes (Other)
  Sender: FDA-Public Use
  Company Number: PHHY2009PL52102

PATIENT
  Sex: Female
  Weight: 47 kg

DRUGS (4)
  1. EXELON [Suspect]
     Indication: DEMENTIA ALZHEIMER'S TYPE
     Dosage: 4.6 MG/24HR.
     Route: 062
     Dates: start: 20090926, end: 20090927
  2. EXELON [Suspect]
     Dosage: UNK
     Route: 062
     Dates: start: 20090101
  3. XANAX [Concomitant]
     Route: 048
  4. DIPHERGAN [Concomitant]
     Route: 048

REACTIONS (1)
  - CHEST PAIN [None]
